FAERS Safety Report 5990684-9 (Version None)
Quarter: 2008Q4

REPORT INFORMATION
  Report Type: 
  Country: None (occurrence: None)
  Receive Date: 20081211
  Receipt Date: 20081202
  Transmission Date: 20090506
  Serious: Yes (Hospitalization)
  Sender: FDA-Public Use
  Company Number: PHHY2008GB25312

PATIENT
  Sex: Male

DRUGS (10)
  1. CLOZARIL [Suspect]
     Indication: SCHIZOPHRENIA
     Dosage: UNK
     Dates: start: 20080414
  2. CLOZARIL [Suspect]
     Dosage: 400 MG, QD
  3. AMITRIPTYLINE HCL [Concomitant]
     Indication: DEPRESSION
     Dosage: 50 MG 1 NOCTE
     Route: 048
     Dates: start: 20000501
  4. DIHYDROCODEINE BITARTRATE INJ [Concomitant]
     Indication: ANALGESIA
     Dosage: 30 MG, QD
     Route: 048
     Dates: start: 19991001
  5. FERROUS SULFATE TAB [Concomitant]
     Indication: ANAEMIA
     Dosage: 200 MG, UNK
     Route: 048
     Dates: start: 20080201
  6. GABAPENTIN [Concomitant]
     Indication: AFFECTIVE DISORDER
     Dosage: 300 MG, UNK
     Route: 048
     Dates: start: 19990901
  7. HYOSCINE [Concomitant]
     Dosage: 300 UG, UNK
     Route: 048
     Dates: start: 20080501
  8. MINOCYCLINE HCL [Concomitant]
     Dosage: 100 MG, UNK
     Route: 048
     Dates: start: 20020701
  9. PROCYCLIDINE HYDROCHLORIDE 2MG TAB [Concomitant]
     Indication: EXTRAPYRAMIDAL DISORDER
     Dosage: 5 MG, UNK
     Route: 048
     Dates: start: 20060801
  10. RISPERIDONE [Concomitant]
     Indication: PSYCHOTIC DISORDER
     Dosage: 2 MG, PRN
     Dates: start: 20070701

REACTIONS (5)
  - CLUMSINESS [None]
  - CONVULSION [None]
  - DYSKINESIA [None]
  - EPILEPSY [None]
  - FALL [None]
